FAERS Safety Report 7580656-5 (Version None)
Quarter: 2011Q2

REPORT INFORMATION
  Report Type: 
  Country: None (occurrence: None)
  Receive Date: 20110629
  Receipt Date: 20110620
  Transmission Date: 20111010
  Serious: Yes (Death, Hospitalization)
  Sender: FDA-Public Use
  Company Number: SE-SANOFI-AVENTIS-2011SA039014

PATIENT
  Age: 72 Year
  Sex: Male
  Weight: 59.5 kg

DRUGS (13)
  1. METOPROLOL TARTRATE [Concomitant]
     Route: 065
     Dates: start: 20090513, end: 20091101
  2. NITROMEX [Concomitant]
     Route: 048
  3. ASPIRIN [Concomitant]
     Route: 048
  4. DUROFERON [Concomitant]
     Route: 048
  5. DIAZEPAM [Concomitant]
     Route: 054
  6. SIMVASTATIN [Concomitant]
     Route: 048
  7. ENOXAPARIN SODIUM [Suspect]
     Route: 065
     Dates: start: 20091007
  8. HALDOL [Concomitant]
     Route: 048
  9. OXASCAND [Concomitant]
     Route: 048
  10. PENTASA [Concomitant]
     Route: 048
  11. VALPROATE SODIUM [Suspect]
     Route: 065
     Dates: start: 20090722
  12. KAJOS [Concomitant]
     Dosage: DOSE:33 MILLIGRAM(S)/MILLILITRE
     Route: 048
  13. FUROSEMIDE [Concomitant]
     Route: 065

REACTIONS (1)
  - GRAND MAL CONVULSION [None]
